FAERS Safety Report 7149627-7 (Version None)
Quarter: 2010Q4

REPORT INFORMATION
  Report Type: 
  Country: None (occurrence: None)
  Receive Date: 20101209
  Receipt Date: 20101130
  Transmission Date: 20110411
  Serious: Yes (Hospitalization)
  Sender: FDA-Public Use
  Company Number: TR-ABBOTT-10P-161-0669924-00

PATIENT
  Age: 26 Year
  Sex: Male

DRUGS (5)
  1. VALPROIC ACID [Suspect]
     Indication: BIPOLAR DISORDER
  2. VALPROIC ACID [Suspect]
  3. QUETIAPINE FUMARATE [Suspect]
     Indication: BIPOLAR DISORDER
  4. QUETIAPINE FUMARATE [Suspect]
  5. LITHIUM [Concomitant]
     Indication: BIPOLAR DISORDER

REACTIONS (2)
  - BLOOD CREATINE PHOSPHOKINASE INCREASED [None]
  - HEPATIC ENZYME INCREASED [None]
